FAERS Safety Report 5072833-2 (Version None)
Quarter: 2006Q4

REPORT INFORMATION
  Report Type: 
  Country: None (occurrence: None)
  Receive Date: 20060802
  Receipt Date: 20060724
  Transmission Date: 20070319
  Serious: Yes (Life-Threatening, Hospitalization)
  Sender: FDA-Public Use
  Company Number: 2006RR-03059

PATIENT
  Sex: Male
  Weight: 112 kg

DRUGS (6)
  1. CEFTAZIDIME [Suspect]
     Indication: NEUTROPENIC SEPSIS
     Dosage: 1 G, TID, INTRAVENOUS
     Route: 042
  2. CIPROFLOXACIN [Suspect]
     Indication: NEUTROPENIC SEPSIS
     Dosage: 500 MG, BIG, INTRAVENOUS
     Route: 042
     Dates: start: 20060317
  3. MEROPENEM [Suspect]
     Indication: NEUTROPENIC SEPSIS
     Dosage: 1 G, TID, INTRAVENOUS
     Route: 042
     Dates: start: 20060305
  4. RITUXIMAB [Suspect]
     Indication: NON-HODGKIN'S LYMPHOMA STAGE IV
     Dates: start: 20060209, end: 20060209
  5. YTTRIUM-90 [Suspect]
     Indication: NON-HODGKIN'S LYMPHOMA STAGE IV
     Dosage: INTRAVENOUS
     Route: 042
     Dates: start: 20060209, end: 20060209
  6. ZEVALIN [Suspect]
     Indication: NON-HODGKIN'S LYMPHOMA STAGE IV
     Dosage: INTRAVENOUS
     Route: 042
     Dates: start: 20060209, end: 20060209

REACTIONS (1)
  - STEVENS-JOHNSON SYNDROME [None]
